FAERS Safety Report 17670924 (Version 1)
Quarter: 2020Q2

REPORT INFORMATION
  Report Type: Spontaneous
  Country: US (occurrence: US)
  Receive Date: 20200415
  Receipt Date: 20200415
  Transmission Date: 20200713
  Serious: No
  Sender: FDA-Public Use
  Company Number: None

PATIENT
  Age: 33 Year
  Sex: Female
  Weight: 85.5 kg

DRUGS (3)
  1. VITAMIN D SUPPLEMENT [Concomitant]
     Active Substance: VITAMIN D NOS
  2. HEADACHE RELIEF EXTRA STRENGTH [Suspect]
     Active Substance: ACETAMINOPHEN\ASPIRIN\CAFFEINE
     Indication: MIGRAINE
     Route: 048
     Dates: start: 20200413, end: 20200413
  3. OTC PAIN RELIEVERS [Concomitant]
     Active Substance: UNSPECIFIED INGREDIENT

REACTIONS (3)
  - Product taste abnormal [None]
  - Product odour abnormal [None]
  - Product quality issue [None]

NARRATIVE: CASE EVENT DATE: 20200413
